FAERS Safety Report 14678293 (Version 1)
Quarter: 2018Q1

REPORT INFORMATION
  Report Type: Report from Study
  Country: GB (occurrence: GB)
  Receive Date: 20180326
  Receipt Date: 20180326
  Transmission Date: 20180509
  Serious: Yes (Hospitalization, Other)
  Sender: FDA-Public Use
  Company Number: GB-ACCORD-064904

PATIENT
  Age: 74 Year
  Sex: Female

DRUGS (7)
  1. METOCLOPRAMIDE. [Concomitant]
     Active Substance: METOCLOPRAMIDE
     Dosage: DOSE 30 MG?10 MG, TID
  2. SANDOSTATIN LAR DEPOT [Suspect]
     Active Substance: OCTREOTIDE ACETATE
     Indication: NEUROENDOCRINE TUMOUR
     Route: 030
     Dates: start: 20160201
  3. FUROSEMIDE. [Concomitant]
     Active Substance: FUROSEMIDE
     Indication: ASCITES
     Dosage: DOSE 2 (UNIT UNKNOWN) BID
  4. SPIRONOLACTONE. [Concomitant]
     Active Substance: SPIRONOLACTONE
     Indication: ASCITES
  5. ASPIRIN. [Concomitant]
     Active Substance: ASPIRIN
  6. ONDANSETRON [Suspect]
     Active Substance: ONDANSETRON
     Indication: PRODUCT USED FOR UNKNOWN INDICATION
  7. LANSOPRAZOLE. [Concomitant]
     Active Substance: LANSOPRAZOLE

REACTIONS (9)
  - Right ventricular failure [Unknown]
  - Fall [Unknown]
  - Abdominal pain [Not Recovered/Not Resolved]
  - Needle issue [Unknown]
  - Hypotension [Unknown]
  - Decreased appetite [Unknown]
  - General physical health deterioration [Unknown]
  - Ill-defined disorder [Unknown]
  - Weight decreased [Unknown]
